FAERS Safety Report 4520886-X (Version None)
Quarter: 2004Q4

REPORT INFORMATION
  Report Type: 
  Country: None (occurrence: None)
  Receive Date: 20041206
  Receipt Date: 20041129
  Transmission Date: 20050328
  Serious: Yes (Life-Threatening, Disabling)
  Sender: FDA-Public Use
  Company Number: GBWYE246601DEC04

PATIENT
  Age: 2 Year
  Sex: 0

DRUGS (6)
  1. RAPAMUNE [Suspect]
     Indication: IMMUNOSUPPRESSANT DRUG THERAPY
     Dosage: 2 MG 1X PER 1 DAY ORAL
     Route: 048
     Dates: start: 20040921, end: 20041018
  2. CODEINE PHOSPHATE (CODEINE PHOSPHATE) [Concomitant]
  3. GENTAMICIN [Concomitant]
  4. TACROLIMUS (TACROLIMUS) [Concomitant]
  5. PREDNISOLONE [Concomitant]
  6. LOPERAMIDE HCL [Concomitant]

REACTIONS (1)
  - HAEMORRHAGE INTRACRANIAL [None]
